FAERS Safety Report 8717281 (Version 6)
Quarter: 2012Q4

REPORT INFORMATION
  Report Type: 
  Country: US (occurrence: US)
  Receive Date: 20120810
  Receipt Date: 20121015
  Transmission Date: 20130627
  Serious: Yes (Other)
  Sender: FDA-Public Use
  Company Number: US-PFIZER INC-2012194265

PATIENT
  Age: 50 Year
  Sex: Female
  Weight: 81.6 kg

DRUGS (6)
  1. PRISTIQ [Suspect]
     Indication: DEPRESSION
     Dosage: 50 mg, 1x/day
     Route: 048
     Dates: start: 2011, end: 201207
  2. PRISTIQ [Suspect]
     Dosage: UNK
     Dates: start: 20120812, end: 20120918
  3. ZYRTEC [Concomitant]
     Indication: HOUSE DUST ALLERGY
     Dosage: UNK, daily
  4. ZYRTEC [Concomitant]
     Indication: HYPERSENSITIVITY
  5. ZYRTEC [Concomitant]
     Indication: ASTHMA
  6. ASPIRIN [Concomitant]
     Indication: CARDIOVASCULAR EVENT PROPHYLAXIS
     Dosage: 81 mg, 1x/day

REACTIONS (10)
  - Depressed mood [Not Recovered/Not Resolved]
  - Post-traumatic stress disorder [Unknown]
  - Withdrawal syndrome [Unknown]
  - Hypersomnia [Not Recovered/Not Resolved]
  - Eating disorder [Not Recovered/Not Resolved]
  - Sleep disorder [Not Recovered/Not Resolved]
  - Feeling abnormal [Not Recovered/Not Resolved]
  - Feelings of worthlessness [Not Recovered/Not Resolved]
  - Nervousness [Not Recovered/Not Resolved]
  - Nasopharyngitis [Unknown]
